FAERS Safety Report 16956560 (Version 1)
Quarter: 2019Q4

REPORT INFORMATION
  Report Type: Report from Study
  Country: DE (occurrence: DE)
  Receive Date: 20191024
  Receipt Date: 20191024
  Transmission Date: 20200122
  Serious: Yes (Hospitalization)
  Sender: FDA-Public Use
  Company Number: DE-ROCHE-2444024

PATIENT
  Age: 25 Year
  Sex: Female

DRUGS (8)
  1. NATALIZUMAB [Concomitant]
     Active Substance: NATALIZUMAB
     Route: 065
     Dates: start: 20151023, end: 20180710
  2. PREDNISOLUT [PREDNISOLONE HEMISUCCINATE] [Concomitant]
     Route: 041
     Dates: start: 20180823, end: 20180823
  3. FENISTIL [Concomitant]
     Active Substance: DIMETHINDENE
     Route: 041
     Dates: start: 20180823, end: 20180823
  4. OCRELIZUMAB. [Suspect]
     Active Substance: OCRELIZUMAB
     Indication: MULTIPLE SCLEROSIS
     Dosage: ON 06/JUN.2018
     Route: 042
     Dates: start: 20190314
  5. INTERFERON BETA-1A [Concomitant]
     Active Substance: INTERFERON BETA-1A
     Route: 065
     Dates: start: 2010, end: 2015
  6. PARACETAMOL [Concomitant]
     Active Substance: ACETAMINOPHEN
     Route: 041
     Dates: start: 20180823, end: 20180823
  7. OCRELIZUMAB. [Suspect]
     Active Substance: OCRELIZUMAB
     Indication: MULTIPLE SCLEROSIS
     Route: 042
     Dates: start: 20180823, end: 20180906
  8. MAXIM [DIENOGEST;ETHINYLESTRADIOL] [Concomitant]
     Active Substance: DIENOGEST\ETHINYL ESTRADIOL
     Route: 048

REACTIONS (1)
  - Pneumonia [Recovered/Resolved]

NARRATIVE: CASE EVENT DATE: 20190730
